FAERS Safety Report 7581307-6 (Version None)
Quarter: 2011Q2

REPORT INFORMATION
  Report Type: 
  Country: None (occurrence: None)
  Receive Date: 20110629
  Receipt Date: 20110622
  Transmission Date: 20111010
  Serious: Yes (Other)
  Sender: FDA-Public Use
  Company Number: US-ROCHE-770940

PATIENT
  Sex: Female
  Weight: 49.9 kg

DRUGS (3)
  1. ACCUTANE [Suspect]
     Indication: ACNE
     Route: 065
     Dates: start: 19991222, end: 20000601
  2. PREDNISONE [Concomitant]
     Dates: start: 19991222
  3. ORTHO TRI-CYCLEN [Concomitant]

REACTIONS (7)
  - INFLAMMATORY BOWEL DISEASE [None]
  - PLATELET COUNT INCREASED [None]
  - IRRITABLE BOWEL SYNDROME [None]
  - ANXIETY [None]
  - BLOOD CHOLESTEROL INCREASED [None]
  - COLITIS ULCERATIVE [None]
  - CROHN'S DISEASE [None]
